FAERS Safety Report 7043647-9 (Version None)
Quarter: 2010Q4

REPORT INFORMATION
  Report Type: 
  Country: None (occurrence: None)
  Receive Date: 20101008
  Receipt Date: 20100928
  Transmission Date: 20110411
  Serious: Yes (Hospitalization)
  Sender: FDA-Public Use
  Company Number: 1000016567

PATIENT
  Age: 65 Year
  Sex: Male

DRUGS (3)
  1. NEBIVOLOL HCL [Suspect]
     Dosage: ORAL
     Route: 048
     Dates: end: 20100830
  2. VELCADE [Suspect]
     Dates: start: 20100730, end: 20100820
  3. DEXAMETHASONE [Suspect]
     Dates: start: 20100730, end: 20100820

REACTIONS (6)
  - ANAEMIA [None]
  - GOITRE [None]
  - INTERSTITIAL LUNG DISEASE [None]
  - ORGANISING PNEUMONIA [None]
  - PHARYNGITIS [None]
  - THYROID NEOPLASM [None]
